FAERS Safety Report 22136166 (Version 1)
Quarter: 2023Q1

REPORT INFORMATION
  Report Type: Spontaneous
  Country: US (occurrence: US)
  Receive Date: 20230324
  Receipt Date: 20230324
  Transmission Date: 20230418
  Serious: No
  Sender: FDA-Public Use
  Company Number: US-009507513-2303USA006145

PATIENT
  Age: 70 Year
  Sex: Female

DRUGS (2)
  1. CUBICIN [Suspect]
     Active Substance: DAPTOMYCIN
     Indication: Staphylococcal infection
     Dosage: 500 MG, EVERY DAY
     Route: 042
  2. UNSPECIFIED INGREDIENT [Concomitant]
     Active Substance: UNSPECIFIED INGREDIENT
     Dosage: INTRAOPERATIVE DOSE OF 1X10^10 PFU/ML, DILUTED IN 10ML OF NORMAL SALINE, RESULTING TITERS ADMINISTER

REACTIONS (1)
  - Product use in unapproved indication [Unknown]
